FAERS Safety Report 7599374-2 (Version None)
Quarter: 2011Q3

REPORT INFORMATION
  Report Type: 
  Country: None (occurrence: None)
  Receive Date: 20110711
  Receipt Date: 20110627
  Transmission Date: 20111222
  Serious: Yes (Other)
  Sender: FDA-Public Use
  Company Number: US-BAYER-2010-009251

PATIENT
  Age: 27 Year
  Sex: Female
  Weight: 113.38 kg

DRUGS (3)
  1. YASMIN [Suspect]
     Indication: PREMENSTRUAL SYNDROME
     Dosage: UNK
     Dates: start: 20040201, end: 20080701
  2. DROSPIRENONE AND ETHINYL ESTRADIOL [Suspect]
     Indication: PREMENSTRUAL SYNDROME
     Dosage: UNK
     Dates: start: 20080701, end: 20090901
  3. GABAPENTIN [Concomitant]
     Indication: NEUROPATHY PERIPHERAL
     Dosage: UNK
     Dates: start: 20080101

REACTIONS (5)
  - CEREBRAL INFARCTION [None]
  - FEAR [None]
  - PAIN [None]
  - ENCEPHALOMALACIA [None]
  - INJURY [None]
